FAERS Safety Report 20362716 (Version 1)
Quarter: 2022Q1

REPORT INFORMATION
  Report Type: Report from Study
  Country: US (occurrence: US)
  Receive Date: 20220121
  Receipt Date: 20220121
  Transmission Date: 20220423
  Serious: Yes (Hospitalization, Other)
  Sender: FDA-Public Use
  Company Number: US-EXELIXIS-XL18421046734

PATIENT

DRUGS (18)
  1. PLACEBO [Suspect]
     Active Substance: UNSPECIFIED INGREDIENT
     Indication: Carcinoid tumour
     Dosage: 60 MG, QD
     Route: 048
     Dates: start: 20210611, end: 20211024
  2. CABOZANTINIB [Suspect]
     Active Substance: CABOZANTINIB
     Indication: Carcinoid tumour
     Dosage: 60 MG, QD
     Route: 048
     Dates: start: 20210611, end: 20211024
  3. ATORVASTATIN [Concomitant]
     Active Substance: ATORVASTATIN
  4. PFIZER-BIONTECH COVID-19 VACCINE [Concomitant]
     Active Substance: TOZINAMERAN
  5. FAMOTIDINE [Concomitant]
     Active Substance: FAMOTIDINE
  6. FLUOXETINE [Concomitant]
     Active Substance: FLUOXETINE HYDROCHLORIDE
  7. GABAPENTIN [Concomitant]
     Active Substance: GABAPENTIN
  8. GLIPIZIDE [Concomitant]
     Active Substance: GLIPIZIDE
  9. IBUPROFEN [Concomitant]
     Active Substance: IBUPROFEN
  10. LISINOPRIL [Concomitant]
     Active Substance: LISINOPRIL
  11. LOPERAMIDE [Concomitant]
     Active Substance: LOPERAMIDE
  12. MAGNESIUM OXIDE [Concomitant]
     Active Substance: MAGNESIUM OXIDE
  13. METFORMIN [Concomitant]
     Active Substance: METFORMIN HYDROCHLORIDE
  14. MIRTAZAPINE [Concomitant]
     Active Substance: MIRTAZAPINE
  15. OCTREOTIDE [Concomitant]
     Active Substance: OCTREOTIDE
  16. OMEPRAZOLE [Concomitant]
     Active Substance: OMEPRAZOLE
  17. ONDANSETRON [Concomitant]
     Active Substance: ONDANSETRON
  18. TRAMADOL [Concomitant]
     Active Substance: TRAMADOL

REACTIONS (9)
  - Hypoxia [Recovering/Resolving]
  - Hypoalbuminaemia [Recovered/Resolved]
  - Hyponatraemia [Recovered/Resolved]
  - Gamma-glutamyltransferase increased [Recovering/Resolving]
  - Fatigue [Recovering/Resolving]
  - Aspartate aminotransferase increased [Recovered/Resolved]
  - Blood alkaline phosphatase increased [Recovered/Resolved]
  - Abdominal pain [Recovered/Resolved]
  - Delirium [Recovered/Resolved]

NARRATIVE: CASE EVENT DATE: 20211024
